FAERS Safety Report 24376019 (Version 1)
Quarter: 2024Q3

REPORT INFORMATION
  Report Type: Spontaneous
  Country: US (occurrence: US)
  Receive Date: 20240928
  Receipt Date: 20240928
  Transmission Date: 20241017
  Serious: No
  Sender: SANOFI AVENTIS
  Company Number: US-SA-2024SA274555

PATIENT
  Age: 27 Year
  Sex: Female
  Weight: 60.91 kg

DRUGS (1)
  1. DUPIXENT [Suspect]
     Active Substance: DUPILUMAB
     Indication: Nasal polyps
     Dosage: 300.000MG QOW
     Route: 058
     Dates: start: 20240827

REACTIONS (6)
  - Parosmia [Unknown]
  - Taste disorder [Unknown]
  - Sinus disorder [Unknown]
  - Condition aggravated [Unknown]
  - Facial discomfort [Unknown]
  - Ear discomfort [Unknown]

NARRATIVE: CASE EVENT DATE: 20240801
